FAERS Safety Report 6714498-7 (Version None)
Quarter: 2010Q2

REPORT INFORMATION
  Report Type: 
  Country: None (occurrence: None)
  Receive Date: 20100506
  Receipt Date: 20100427
  Transmission Date: 20101027
  Serious: Yes (Hospitalization)
  Sender: FDA-Public Use
  Company Number: CA-AMGEN-QUU408806

PATIENT
  Age: 10 Year
  Sex: Male
  Weight: 29 kg

DRUGS (2)
  1. ENBREL [Suspect]
     Indication: DRUG USE FOR UNKNOWN INDICATION
     Route: 058
  2. PREDNISONE [Concomitant]
     Route: 065

REACTIONS (5)
  - CSF WHITE BLOOD CELL COUNT INCREASED [None]
  - HEADACHE [None]
  - LETHARGY [None]
  - MENINGITIS [None]
  - VOMITING [None]
